FAERS Safety Report 14530043 (Version 1)
Quarter: 2018Q1

REPORT INFORMATION
  Report Type: Spontaneous
  Country: US (occurrence: US)
  Receive Date: 20180214
  Receipt Date: 20180214
  Transmission Date: 20180509
  Serious: No
  Sender: FDA-Public Use
  Company Number: US-IGSA-SR10005573

PATIENT
  Age: 74 Year
  Sex: Male
  Weight: 105 kg

DRUGS (4)
  1. ALLOPURINOL. [Concomitant]
     Active Substance: ALLOPURINOL
  2. LYRICA [Concomitant]
     Active Substance: PREGABALIN
  3. VITAMINS                           /00067501/ [Concomitant]
     Active Substance: VITAMINS
  4. PROLASTIN-C [Suspect]
     Active Substance: .ALPHA.1-PROTEINASE INHIBITOR HUMAN
     Indication: ALPHA-1 ANTI-TRYPSIN DEFICIENCY
     Dosage: 6300 MG, UNK
     Route: 042
     Dates: start: 200511

REACTIONS (5)
  - Influenza like illness [Recovered/Resolved]
  - Headache [Recovered/Resolved]
  - Chills [Recovered/Resolved]
  - Rhinorrhoea [Recovered/Resolved]
  - Feeling cold [Recovered/Resolved]

NARRATIVE: CASE EVENT DATE: 20171128
